FAERS Safety Report 12313530 (Version 1)
Quarter: 2016Q2

REPORT INFORMATION
  Report Type: Spontaneous
  Country: US (occurrence: US)
  Receive Date: 20160428
  Receipt Date: 20160428
  Transmission Date: 20160815
  Serious: Yes (Hospitalization, Other)
  Sender: FDA-Public Use
  Company Number: US-GLAXOSMITHKLINE-A0737245A

PATIENT
  Age: 40 Year
  Sex: Male
  Weight: 81.63 kg

DRUGS (9)
  1. NEURONTIN [Concomitant]
     Active Substance: GABAPENTIN
  2. LEXAPRO [Concomitant]
     Active Substance: ESCITALOPRAM OXALATE
  3. MOTILIUM [Concomitant]
     Active Substance: DOMPERIDONE
  4. LAMICTAL XR [Suspect]
     Active Substance: LAMOTRIGINE
     Indication: AFFECTIVE DISORDER
     Dosage: 200 MG, QD
     Dates: start: 2011
  5. LAMICTAL [Suspect]
     Active Substance: LAMOTRIGINE
     Indication: BIPOLAR DISORDER
     Route: 048
  6. TIROSINT [Concomitant]
     Active Substance: LEVOTHYROXINE SODIUM
  7. CYTOMEL [Concomitant]
     Active Substance: LIOTHYRONINE SODIUM
  8. CONCERTA [Concomitant]
     Active Substance: METHYLPHENIDATE HYDROCHLORIDE
  9. REMERON [Concomitant]
     Active Substance: MIRTAZAPINE

REACTIONS (22)
  - Asthenia [Unknown]
  - Rash [Unknown]
  - Hypothyroidism [Unknown]
  - Chest pain [Unknown]
  - Nausea [Not Recovered/Not Resolved]
  - Ill-defined disorder [Not Recovered/Not Resolved]
  - Disturbance in attention [Not Recovered/Not Resolved]
  - Eye irritation [Not Recovered/Not Resolved]
  - Panic attack [Unknown]
  - Palpitations [Unknown]
  - Aphasia [Not Recovered/Not Resolved]
  - Heart rate increased [Unknown]
  - Urinary incontinence [Unknown]
  - Rosacea [Unknown]
  - Mitral valve prolapse [Unknown]
  - Mood altered [Not Recovered/Not Resolved]
  - Gastric operation [Recovering/Resolving]
  - Amnesia [Not Recovered/Not Resolved]
  - Sluggishness [Unknown]
  - Foreign body sensation in eyes [Unknown]
  - Dry eye [Unknown]
  - Depression [Not Recovered/Not Resolved]

NARRATIVE: CASE EVENT DATE: 2011
